FAERS Safety Report 7566846-6 (Version None)
Quarter: 2011Q2

REPORT INFORMATION
  Report Type: 
  Country: None (occurrence: None)
  Receive Date: 20110616
  Receipt Date: 20110602
  Transmission Date: 20111010
  Serious: Yes (Hospitalization)
  Sender: FDA-Public Use
  Company Number: DSJ-2011-11038

PATIENT
  Age: 7 Decade
  Sex: Male

DRUGS (1)
  1. BENICAR [Suspect]
     Indication: HYPERTENSION
     Dosage: 40 MG (40 MG 1 IN 1 D), PER ORAL
     Route: 048
     Dates: start: 20100520

REACTIONS (4)
  - DRUG INEFFECTIVE [None]
  - NOSOCOMIAL INFECTION [None]
  - CHOLECYSTECTOMY [None]
  - OVERDOSE [None]
